FAERS Safety Report 4791753-1 (Version None)
Quarter: 2005Q4

REPORT INFORMATION
  Report Type: 
  Country: None (occurrence: None)
  Receive Date: 20051005
  Receipt Date: 20050922
  Transmission Date: 20060501
  Serious: Yes (Death, Other)
  Sender: FDA-Public Use
  Company Number: 200512534GDS

PATIENT

DRUGS (3)
  1. TRASYLOL [Suspect]
     Indication: POST PROCEDURAL HAEMORRHAGE
     Dosage: SEE IMAGE
     Route: 042
  2. TRASYLOL [Suspect]
     Indication: THERAPEUTIC PROCEDURE
     Dosage: SEE IMAGE
     Route: 042
  3. CLOPIDOGREL [Concomitant]

REACTIONS (6)
  - ARTERIAL THROMBOSIS [None]
  - MEDIASTINITIS [None]
  - MYOCARDIAL INFARCTION [None]
  - PROCEDURAL COMPLICATION [None]
  - TROPONIN T INCREASED [None]
  - VENOUS THROMBOSIS [None]
